FAERS Safety Report 16772834 (Version 2)
Quarter: 2021Q1

REPORT INFORMATION
  Report Type: Spontaneous
  Country: US (occurrence: US)
  Receive Date: 20190904
  Receipt Date: 20210106
  Transmission Date: 20210419
  Serious: Yes (Hospitalization, Other)
  Sender: FDA-Public Use
  Company Number: US-ALLERGAN-1929356US

PATIENT
  Sex: Female

DRUGS (2)
  1. MORPHINE SULFATE UNK [Suspect]
     Active Substance: MORPHINE SULFATE
     Indication: NECK PAIN
     Dosage: ACTUAL: 30 MG, SINGLE
     Route: 048
     Dates: start: 20180724
  2. HYDROCODONE/ACETAMINOPHEN [Concomitant]
     Active Substance: ACETAMINOPHEN\HYDROCODONE
     Indication: SPINAL OSTEOARTHRITIS
     Dosage: 10/325 MG, PRN
     Dates: start: 20180807

REACTIONS (9)
  - Choking [Recovered/Resolved]
  - Muscle twitching [Recovered/Resolved]
  - Dysarthria [Recovered/Resolved]
  - Mental status changes [Recovered/Resolved]
  - Miosis [Recovered/Resolved]
  - Contraindicated product prescribed [Unknown]
  - Depressed level of consciousness [Recovered/Resolved]
  - Bradypnoea [Recovered/Resolved]
  - Toxicity to various agents [Recovered/Resolved]

NARRATIVE: CASE EVENT DATE: 20180724
